FAERS Safety Report 18021034 (Version 1)
Quarter: 2020Q3

REPORT INFORMATION
  Report Type: Not Available
  Country: US (occurrence: US)
  Receive Date: 20200714
  Receipt Date: 20200714
  Transmission Date: 20201103
  Serious: No
  Sender: FDA-Public Use
  Company Number: US-NEUROCRINE BIOSCIENCES INC.-2020NBI02279

PATIENT
  Age: 53 Year
  Sex: Male

DRUGS (7)
  1. INGREZZA [Suspect]
     Active Substance: VALBENAZINE
     Indication: TARDIVE DYSKINESIA
     Route: 048
     Dates: start: 20200219, end: 2020
  2. QUETIAPINE. [Concomitant]
     Active Substance: QUETIAPINE
  3. RISPERDAL CONSTA [Concomitant]
     Active Substance: RISPERIDONE
  4. LATANOPROST. [Concomitant]
     Active Substance: LATANOPROST
  5. GABAPENTIN. [Concomitant]
     Active Substance: GABAPENTIN
  6. ATENOLOL. [Concomitant]
     Active Substance: ATENOLOL
  7. LISINOPRIL. [Concomitant]
     Active Substance: LISINOPRIL

REACTIONS (1)
  - Drug ineffective [Unknown]

NARRATIVE: CASE EVENT DATE: 2020
